FAERS Safety Report 8609928-X (Version None)
Quarter: 2012Q3

REPORT INFORMATION
  Report Type: 
  Country: None (occurrence: None)
  Receive Date: 20120821
  Receipt Date: 20090410
  Transmission Date: 20120928
  Serious: Yes (Other)
  Sender: FDA-Public Use
  Company Number: PHHY2009US070916

PATIENT

DRUGS (1)
  1. LAMISIL [Suspect]

REACTIONS (1)
  - INFECTION [None]
